FAERS Safety Report 8897939 (Version 1)
Quarter: 2012Q4

REPORT INFORMATION
  Report Type: 
  Country: US (occurrence: US)
  Receive Date: 20121108
  Receipt Date: 20121108
  Transmission Date: 20130627
  Serious: No
  Sender: FDA-Public Use
  Company Number: US-AMGEN-USASP2012031098

PATIENT
  Age: 56 Year

DRUGS (9)
  1. ENBREL [Suspect]
     Indication: PRODUCT USED FOR UNKNOWN INDICATION
     Dosage: 50 mg, qwk
     Route: 058
  2. METHOTREXATE [Concomitant]
     Dosage: 2.5 mg, UNK
  3. SULINDAC [Concomitant]
     Dosage: 150 mg, UNK
  4. LISINOPRIL [Concomitant]
     Dosage: 10 mg, UNK
  5. MIRAPEX [Concomitant]
     Dosage: 0.125 mg, UNK
  6. FOLIC ACID [Concomitant]
     Dosage: UNK
  7. CENTRUM                            /00554501/ [Concomitant]
     Dosage: UNK
  8. VITAMIN B 12 [Concomitant]
     Dosage: 1000 mug, UNK
     Route: 058
  9. VITAMIN C                          /00008001/ [Concomitant]
     Dosage: 500 mg, UNK

REACTIONS (1)
  - Injection site pain [Unknown]
